FAERS Safety Report 8440718-7 (Version None)
Quarter: 2012Q2

REPORT INFORMATION
  Report Type: 
  Country: None (occurrence: None)
  Receive Date: 20120615
  Receipt Date: 20120606
  Transmission Date: 20120825
  Serious: Yes (Other)
  Sender: FDA-Public Use
  Company Number: US-ASTRAZENECA-2012SE38030

PATIENT
  Age: 37 Year
  Sex: Male

DRUGS (2)
  1. CAPRELSA [Suspect]
     Indication: THYROID CANCER
     Route: 048
     Dates: start: 20120101
  2. CAPRELSA [Suspect]
     Route: 048

REACTIONS (3)
  - RASH [None]
  - ACNE [None]
  - ELECTROCARDIOGRAM QT PROLONGED [None]
